FAERS Safety Report 6162767-4 (Version None)
Quarter: 2009Q2

REPORT INFORMATION
  Report Type: 
  Country: None (occurrence: None)
  Receive Date: 20090421
  Receipt Date: 20080610
  Transmission Date: 20091009
  Serious: No
  Sender: FDA-Public Use
  Company Number: US-ASTRAZENECA-2008UW11704

PATIENT
  Age: 84 Year
  Sex: Female

DRUGS (11)
  1. TOPROL-XL [Suspect]
     Indication: HYPERTENSION
     Route: 048
  2. PRESERVISION LUTEIN SOFT GELS [Suspect]
     Indication: VITAMIN SUPPLEMENTATION
     Route: 048
     Dates: start: 20080531
  3. ASPIRIN [Concomitant]
  4. GLUCOSAMINE [Concomitant]
  5. LOVAZA [Concomitant]
     Dates: start: 20080601
  6. ASCORBIC ACID [Concomitant]
  7. VITAMIN B COMPLEX CAP [Concomitant]
  8. CALCIUM WITH VITAMIN D [Concomitant]
  9. CENTRUM SILVER [Concomitant]
  10. LASIX [Concomitant]
  11. GLYNASE [Concomitant]

REACTIONS (2)
  - DIZZINESS [None]
  - JOINT EFFUSION [None]
